FAERS Safety Report 5511316-X (Version None)
Quarter: 2007Q4

REPORT INFORMATION
  Report Type: 
  Country: None (occurrence: None)
  Receive Date: 20071109
  Receipt Date: 20070821
  Transmission Date: 20080405
  Serious: No
  Sender: FDA-Public Use
  Company Number: A0673440A

PATIENT
  Age: 69 Year
  Sex: Female

DRUGS (6)
  1. ALTABAX [Suspect]
     Dosage: 1APP TWICE PER DAY
     Route: 061
     Dates: start: 20070811
  2. INVANZ [Concomitant]
  3. FOSAMAX [Concomitant]
  4. LIPITOR [Concomitant]
  5. FLOVENT [Concomitant]
  6. NEXIUM [Concomitant]

REACTIONS (1)
  - ERYTHEMA [None]
